FAERS Safety Report 8187978-8 (Version None)
Quarter: 2012Q1

REPORT INFORMATION
  Report Type: 
  Country: None (occurrence: None)
  Receive Date: 20120306
  Receipt Date: 20120228
  Transmission Date: 20120608
  Serious: Yes (Life-Threatening, Other)
  Sender: FDA-Public Use
  Company Number: FR-ELI_LILLY_AND_COMPANY-FR201202007800

PATIENT
  Sex: Male

DRUGS (10)
  1. BISOPROLOL FUMARATE [Concomitant]
     Dosage: 7.5 MG, UNKNOWN
  2. LASIX [Concomitant]
     Dosage: 20 MG, UNKNOWN
  3. MABCAMPATH [Concomitant]
     Indication: T-CELL LYMPHOMA
     Dosage: UNK, UNKNOWN
  4. RAMIPRIL [Concomitant]
     Dosage: 5 MG, UNKNOWN
  5. NEXIUM [Concomitant]
     Dosage: UNK, UNKNOWN
  6. GEMZAR [Suspect]
     Indication: T-CELL LYMPHOMA
     Dosage: UNK, UNKNOWN
     Route: 042
     Dates: start: 20110808
  7. INSPRA [Concomitant]
     Dosage: 25 MG, UNKNOWN
  8. LEVOTHYROXINE SODIUM [Concomitant]
     Dosage: UNK, UNKNOWN
  9. LEXOMIL [Concomitant]
     Dosage: 12 MG, UNKNOWN
  10. OMEPRAZOLE [Concomitant]
     Dosage: UNK, UNKNOWN

REACTIONS (2)
  - CONGESTIVE CARDIOMYOPATHY [None]
  - CARDIAC FAILURE [None]
